FAERS Safety Report 16985955 (Version 1)
Quarter: 2019Q4

REPORT INFORMATION
  Report Type: Spontaneous
  Country: US (occurrence: US)
  Receive Date: 20190917
  Receipt Date: 20190917
  Transmission Date: 20200122
  Serious: No
  Sender: FDA-Public Use
  Company Number: None

PATIENT
  Age: 68 Year
  Sex: Male
  Weight: 91 kg

DRUGS (1)
  1. AMIODARONE [Suspect]
     Active Substance: AMIODARONE
     Dates: end: 20180701

REACTIONS (5)
  - Asthenia [None]
  - Akinesia [None]
  - Coordination abnormal [None]
  - Paraesthesia [None]
  - Ataxia [None]

NARRATIVE: CASE EVENT DATE: 20180701
